FAERS Safety Report 4601357-9 (Version None)
Quarter: 2005Q1

REPORT INFORMATION
  Report Type: 
  Country: None (occurrence: None)
  Receive Date: 20050308
  Receipt Date: 20050209
  Transmission Date: 20050727
  Serious: Yes (Hospitalization)
  Sender: FDA-Public Use
  Company Number: GBWYE417211FEB05

PATIENT
  Sex: Male
  Weight: 76 kg

DRUGS (12)
  1. ENBREL [Suspect]
     Indication: RHEUMATOID ARTHRITIS
     Route: 058
     Dates: start: 20030604
  2. METHOTREXATE [Concomitant]
  3. PREDNISOLONE [Concomitant]
  4. MISOPROSTOL [Concomitant]
  5. BENDROFLUMETHIAZIDE [Concomitant]
  6. SOTALOL HCL [Concomitant]
  7. PRAVASTATIN [Concomitant]
  8. FOLIC ACID [Concomitant]
  9. ACETYLSALICYLIC ACID [Concomitant]
  10. CALCICHEW [Concomitant]
  11. LOSEC [Concomitant]
  12. NAPROXEN [Concomitant]

REACTIONS (2)
  - CELLULITIS [None]
  - VASCULITIC RASH [None]
